FAERS Safety Report 8003000-8 (Version None)
Quarter: 2011Q4

REPORT INFORMATION
  Report Type: 
  Country: None (occurrence: None)
  Receive Date: 20111222
  Receipt Date: 20110803
  Transmission Date: 20120403
  Serious: No
  Sender: FDA-Public Use
  Company Number: US-GLAXOSMITHKLINE-A0939543A

PATIENT
  Age: 73 Year
  Sex: Male

DRUGS (10)
  1. WELCHOL [Concomitant]
  2. MOTRIN [Concomitant]
  3. LOTREL [Concomitant]
  4. ASPIRIN [Concomitant]
  5. MULTI-VITAMIN [Concomitant]
  6. AVODART [Suspect]
     Indication: BENIGN PROSTATIC HYPERPLASIA
     Dosage: 1CAP PER DAY
     Route: 048
     Dates: start: 20100801
  7. TRIAMTERENE [Concomitant]
  8. MSM WITH GLUCOSAMINE [Concomitant]
  9. CALCIUM [Concomitant]
  10. ACETAMINOPHEN [Concomitant]

REACTIONS (4)
  - PRURITUS [None]
  - RASH [None]
  - VENTRICULAR EXTRASYSTOLES [None]
  - HEART RATE IRREGULAR [None]
